FAERS Safety Report 15109668 (Version 1)
Quarter: 2018Q3

REPORT INFORMATION
  Report Type: Spontaneous
  Country: US (occurrence: US)
  Receive Date: 20180705
  Receipt Date: 20180705
  Transmission Date: 20181010
  Serious: Yes (Hospitalization)
  Sender: FDA-Public Use
  Company Number: US-SHENZHEN TECHDOW PHARMACEUTICAL CO. LTD-US-2018TEC0000027

PATIENT
  Age: 35 Year
  Sex: Female

DRUGS (5)
  1. SODIUM THIOSULFATE [Concomitant]
     Active Substance: SODIUM THIOSULFATE
     Indication: CALCIPHYLAXIS
     Dosage: 25 G, QD (TITRATED)
     Route: 042
  2. VITAMIN K [Concomitant]
     Active Substance: PHYTONADIONE
     Indication: CALCIPHYLAXIS
     Dosage: UNK
  3. PENTOXIFYLLINE. [Suspect]
     Active Substance: PENTOXIFYLLINE
     Indication: CALCIPHYLAXIS
     Dosage: UNK
  4. HEPARIN SODIUM INJECTION USP, PRESERVATIVE FREE [Suspect]
     Active Substance: HEPARIN SODIUM
     Indication: CALCIPHYLAXIS
     Dosage: UNK
     Route: 058
  5. ZOLEDRONIC ACID [Concomitant]
     Active Substance: ZOLEDRONIC ACID
     Indication: CALCIPHYLAXIS
     Dosage: 1 DF, UNK

REACTIONS (1)
  - Shock haemorrhagic [Recovering/Resolving]
